FAERS Safety Report 17689048 (Version 1)
Quarter: 2020Q2

REPORT INFORMATION
  Report Type: Spontaneous
  Country: US (occurrence: US)
  Receive Date: 20200421
  Receipt Date: 20200421
  Transmission Date: 20200714
  Serious: Yes (Hospitalization)
  Sender: FDA-Public Use
  Company Number: US-TOPROL ACQUISITION LLC-2020-TOP-000217

PATIENT
  Sex: Male
  Weight: 104.3 kg

DRUGS (4)
  1. METOPROLOL SUCCINATE. [Suspect]
     Active Substance: METOPROLOL SUCCINATE
     Indication: HEART RATE INCREASED
     Dosage: 100 MG, UNK
  2. METOPROLOL SUCCINATE. [Suspect]
     Active Substance: METOPROLOL SUCCINATE
     Dosage: 50 MG, QD
     Dates: start: 20200228
  3. NORPACE [Concomitant]
     Active Substance: DISOPYRAMIDE PHOSPHATE
     Indication: HYPERTROPHIC CARDIOMYOPATHY
     Dosage: 500 MG, QD (250 MG IN THE MORNING AND 250 AT NIGHT)
     Route: 048
     Dates: start: 20200227
  4. NORPACE [Concomitant]
     Active Substance: DISOPYRAMIDE PHOSPHATE
     Dosage: 500 MG, QD (250 MG IN THE MORNING AND 250 AT NIGHT)
     Route: 048
     Dates: start: 20200227

REACTIONS (4)
  - Therapeutic product ineffective for unapproved indication [Unknown]
  - Atrial fibrillation [Unknown]
  - Bradycardia [Unknown]
  - Off label use [Unknown]
